FAERS Safety Report 19857147 (Version 1)
Quarter: 2021Q3

REPORT INFORMATION
  Report Type: Spontaneous
  Country: US (occurrence: US)
  Receive Date: 20210921
  Receipt Date: 20210921
  Transmission Date: 20211014
  Serious: Yes (Other)
  Sender: FDA-Public Use
  Company Number: US-ASTRAZENECA-2021A725841

PATIENT
  Age: 917 Month
  Sex: Female
  Weight: 64.4 kg

DRUGS (2)
  1. SYMBICORT [Suspect]
     Active Substance: BUDESONIDE\FORMOTEROL FUMARATE DIHYDRATE
     Indication: CHRONIC OBSTRUCTIVE PULMONARY DISEASE
     Dosage: 160/4.5MCG: TWO TIMES A DAY
     Route: 055
  2. BREZTRI AEROSPHERE [Suspect]
     Active Substance: BUDESONIDE\FORMOTEROL\GLYCOPYRRONIUM
     Indication: CHRONIC OBSTRUCTIVE PULMONARY DISEASE
     Dosage: UNKNOWN
     Route: 055
     Dates: start: 2020, end: 2020

REACTIONS (9)
  - Device malfunction [Unknown]
  - Peroneal nerve palsy [Unknown]
  - Dyspnoea [Unknown]
  - Limb injury [Unknown]
  - Respiratory tract infection [Unknown]
  - Intentional device misuse [Not Recovered/Not Resolved]
  - Fall [Unknown]
  - Lumbar vertebral fracture [Unknown]
  - Pain [Unknown]

NARRATIVE: CASE EVENT DATE: 202109
